FAERS Safety Report 9161980 (Version 1)
Quarter: 2013Q1

REPORT INFORMATION
  Report Type: Spontaneous
  Country: US (occurrence: None)
  Receive Date: 20130225
  Receipt Date: 20130225
  Transmission Date: 20140127
  Serious: Yes (Other)
  Sender: FDA-Public Use
  Company Number: TPA2012A07306

PATIENT
  Age: 73 Year
  Sex: Male

DRUGS (4)
  1. ADENURIC (FEBUXOSTAT) [Suspect]
     Indication: HYPERURICAEMIA
     Dosage: 80 MG (80 MG, 1IN 1 D)
     Route: 048
     Dates: start: 20120511
  2. HYTACAND (HYDROCHLOROTHIAZIDE, CANDESARTAN CILEXETIL) [Concomitant]
  3. TEMERIT (NEBIVOLOL HYDROCHLORIDE) [Concomitant]
  4. SIMVASTATINE (SIMVASTATIN) [Concomitant]

REACTIONS (6)
  - Immunosuppression [None]
  - Pyrexia [None]
  - Bronchopneumonia [None]
  - Angioedema [None]
  - Hypersensitivity [None]
  - Rash [None]
